FAERS Safety Report 5764002-5 (Version None)
Quarter: 2008Q2

REPORT INFORMATION
  Report Type: 
  Country: None (occurrence: None)
  Receive Date: 20080609
  Receipt Date: 20080304
  Transmission Date: 20081010
  Serious: No
  Sender: FDA-Public Use
  Company Number: 002#2#2008-00108

PATIENT
  Age: 51 Year
  Sex: Female
  Weight: 50.8029 kg

DRUGS (6)
  1. NEUPRO [Suspect]
     Indication: RESTLESS LEGS SYNDROME
     Dosage: 4MG/24H,1 IN 1 D,TRANSDERMAL ; 2MG/24H,1 IN 1 D,TRANSDERMAL
     Route: 062
     Dates: start: 20071201, end: 20080101
  2. NEUPRO [Suspect]
     Indication: RESTLESS LEGS SYNDROME
     Dosage: 4MG/24H,1 IN 1 D,TRANSDERMAL ; 2MG/24H,1 IN 1 D,TRANSDERMAL
     Route: 062
     Dates: start: 20080101, end: 20080301
  3. PROZAC [Concomitant]
  4. BUSPIRONE HCL [Concomitant]
  5. FOSAMAX [Concomitant]
  6. NEURONTIN [Concomitant]

REACTIONS (4)
  - APPLICATION SITE PRURITUS [None]
  - APPLICATION SITE REACTION [None]
  - OFF LABEL USE [None]
  - PHARMACEUTICAL PRODUCT COMPLAINT [None]
